FAERS Safety Report 13659271 (Version 1)
Quarter: 2017Q2

REPORT INFORMATION
  Report Type: Spontaneous
  Country: US (occurrence: US)
  Receive Date: 20170616
  Receipt Date: 20170616
  Transmission Date: 20170830
  Serious: Yes (Hospitalization)
  Sender: FDA-Public Use
  Company Number: None

PATIENT
  Age: 80 Year
  Sex: Male
  Weight: 74.9 kg

DRUGS (12)
  1. XALATAN [Concomitant]
     Active Substance: LATANOPROST
  2. COLACE [Concomitant]
     Active Substance: DOCUSATE SODIUM
  3. HUMALOG [Suspect]
     Active Substance: INSULIN LISPRO
     Indication: DIABETES MELLITUS
     Dosage: DATES OF USE - CHRONIC?DOSE AMOUNT - SSI
     Route: 058
  4. HYDRALAZINE [Concomitant]
     Active Substance: HYDRALAZINE HYDROCHLORIDE
  5. KAYCIEL [Concomitant]
  6. MAG OX [Concomitant]
     Active Substance: MAGNESIUM OXIDE
  7. ATORVASTATIN [Concomitant]
     Active Substance: ATORVASTATIN
  8. LOPRESSOR [Concomitant]
     Active Substance: METOPROLOL TARTRATE
  9. LANTUS [Suspect]
     Active Substance: INSULIN GLARGINE
     Indication: DIABETES MELLITUS
     Dosage: DATES OF USE - CHRONIC?DOSE AMOUNT - 10 UNITS
     Route: 058
  10. NORVASC [Concomitant]
     Active Substance: AMLODIPINE BESYLATE
  11. LABETOLOL [Concomitant]
     Active Substance: LABETALOL HYDROCHLORIDE
  12. LACTOBACILLUS ACIDOPHILUS\LACTOBACILLUS BULGARICUS [Concomitant]
     Active Substance: LACTOBACILLUS ACIDOPHILUS\LACTOBACILLUS DELBRUECKII SUBSP. BULGARICUS

REACTIONS (4)
  - Subdural haematoma [None]
  - Lethargy [None]
  - Blood glucose decreased [None]
  - Muscular weakness [None]

NARRATIVE: CASE EVENT DATE: 20170320
